FAERS Safety Report 25036845 (Version 1)
Quarter: 2025Q1

REPORT INFORMATION
  Report Type: Spontaneous
  Country: CN (occurrence: CN)
  Receive Date: 20250304
  Receipt Date: 20250304
  Transmission Date: 20250408
  Serious: Yes (Hospitalization)
  Sender: ELI LILLY AND COMPANY
  Company Number: CN-ELI_LILLY_AND_COMPANY-CN202502018443

PATIENT
  Age: 65 Year
  Sex: Female
  Weight: 43.8 kg

DRUGS (2)
  1. ABEMACICLIB [Suspect]
     Active Substance: ABEMACICLIB
     Indication: Neoplasm
     Dosage: 150 MG, BID
     Route: 048
     Dates: start: 20250110, end: 20250114
  2. AROMASIN [Suspect]
     Active Substance: EXEMESTANE
     Indication: Neoplasm
     Dosage: 25 MG, ONCE DAILY
     Route: 048
     Dates: start: 20250110, end: 20250114

REACTIONS (1)
  - Myelosuppression [Recovering/Resolving]

NARRATIVE: CASE EVENT DATE: 20250111
